FAERS Safety Report 25134119 (Version 1)
Quarter: 2025Q1

REPORT INFORMATION
  Report Type: Spontaneous
  Country: US (occurrence: US)
  Receive Date: 20250328
  Receipt Date: 20250328
  Transmission Date: 20250409
  Serious: Yes (Hospitalization, Other)
  Sender: AMGEN
  Company Number: US-AMGEN-USASP2025059257

PATIENT
  Age: 51 Year
  Sex: Male

DRUGS (6)
  1. PREDNISONE [Suspect]
     Active Substance: PREDNISONE
     Indication: Myocarditis
     Route: 065
  2. PREDNISONE [Suspect]
     Active Substance: PREDNISONE
     Route: 065
  3. PAZOPANIB [Concomitant]
     Active Substance: PAZOPANIB
     Indication: Sarcoma metastatic
  4. LIDOCAINE [Concomitant]
     Active Substance: LIDOCAINE
  5. AMIODARONE [Concomitant]
     Active Substance: AMIODARONE
  6. METOPROLOL [Concomitant]
     Active Substance: METOPROLOL

REACTIONS (7)
  - Ventricular extrasystoles [Unknown]
  - Sarcoma metastatic [Unknown]
  - Ventricular arrhythmia [Unknown]
  - Ventricular tachycardia [Unknown]
  - Myocarditis [Unknown]
  - Drug effective for unapproved indication [Unknown]
  - Off label use [Unknown]
